FAERS Safety Report 10309920 (Version 1)
Quarter: 2014Q3

REPORT INFORMATION
  Report Type: Spontaneous
  Country: US (occurrence: None)
  Receive Date: 20140715
  Receipt Date: 20140715
  Transmission Date: 20150326
  Serious: Yes (Life-Threatening, Hospitalization, Disabling, Other)
  Sender: FDA-Public Use
  Company Number: None

PATIENT
  Age: 21 Year
  Sex: Female
  Weight: 58.97 kg

DRUGS (1)
  1. LEXAPRO [Suspect]
     Active Substance: ESCITALOPRAM OXALATE
     Indication: ANXIETY
     Dosage: 2 PILLS TAKEN BY MOUTH
     Route: 048

REACTIONS (19)
  - Heart rate increased [None]
  - Convulsion [None]
  - Agitation [None]
  - Schizophreniform disorder [None]
  - Withdrawal syndrome [None]
  - Mania [None]
  - Vomiting [None]
  - Bipolar disorder [None]
  - Hallucination [None]
  - Confusional state [None]
  - Abdominal pain [None]
  - Muscle twitching [None]
  - Serotonin syndrome [None]
  - Insomnia [None]
  - Diarrhoea [None]
  - Mental impairment [None]
  - Fear [None]
  - Aphagia [None]
  - Heart rate irregular [None]

NARRATIVE: CASE EVENT DATE: 20121030
